FAERS Safety Report 11714175 (Version 5)
Quarter: 2016Q1

REPORT INFORMATION
  Report Type: Spontaneous
  Country: US (occurrence: US)
  Receive Date: 20151109
  Receipt Date: 20160111
  Transmission Date: 20160525
  Serious: Yes (Death, Hospitalization, Other)
  Sender: FDA-Public Use
  Company Number: US-PFIZER INC-2015342417

PATIENT
  Age: 61 Year
  Sex: Male
  Weight: 104.3 kg

DRUGS (5)
  1. COZAAR [Concomitant]
     Active Substance: LOSARTAN POTASSIUM
     Dosage: UNK
  2. SUTENT [Suspect]
     Active Substance: SUNITINIB MALATE
     Indication: METASTATIC RENAL CELL CARCINOMA
     Dosage: 50 MG, CYCLIC (ALTERNATE STARTING REGIMEN OF 50MG DAILY FOR 2WEEKS ON / 1 WEEK OFF)
     Dates: start: 20151009, end: 201510
  3. ALEVE [Concomitant]
     Active Substance: NAPROXEN SODIUM
     Dosage: UNK
  4. SUTENT [Suspect]
     Active Substance: SUNITINIB MALATE
     Dosage: 50 MG, CYCLIC (2 WEEKS ON/ 1 WEEK OFF)
     Dates: start: 20151014
  5. FRAGMIN [Concomitant]
     Active Substance: DALTEPARIN SODIUM
     Indication: DEEP VEIN THROMBOSIS
     Dosage: UNK, DAILY
     Dates: start: 201506

REACTIONS (19)
  - Erythema [Unknown]
  - Skin disorder [Unknown]
  - Haematochezia [Fatal]
  - Hypertension [Recovering/Resolving]
  - Fatigue [Unknown]
  - Malaise [Recovering/Resolving]
  - Lip pain [Unknown]
  - Weight increased [Unknown]
  - Renal impairment [Unknown]
  - Influenza like illness [Not Recovered/Not Resolved]
  - Flushing [Unknown]
  - Decreased appetite [Recovering/Resolving]
  - Sensitivity of teeth [Unknown]
  - Headache [Unknown]
  - Upper respiratory tract infection [Unknown]
  - Night sweats [Unknown]
  - Pain [Recovering/Resolving]
  - Diarrhoea [Unknown]
  - Asthenia [Unknown]

NARRATIVE: CASE EVENT DATE: 20151022
